FAERS Safety Report 4442849-5 (Version None)
Quarter: 2004Q3

REPORT INFORMATION
  Report Type: 
  Country: None (occurrence: None)
  Receive Date: 20040903
  Receipt Date: 20040616
  Transmission Date: 20050211
  Serious: Yes (Other)
  Sender: FDA-Public Use
  Company Number: 2004UW10828

PATIENT
  Age: 66 Year
  Sex: Female
  Weight: 63.5036 kg

DRUGS (4)
  1. CRESTOR [Suspect]
     Indication: HYPERCHOLESTEROLAEMIA
     Dosage: 10  MG QD PO
     Route: 048
     Dates: start: 20040507, end: 20040531
  2. GLUCOSAMINE [Concomitant]
  3. BENADRYL [Concomitant]
  4. PROZAC [Concomitant]

REACTIONS (3)
  - INSOMNIA [None]
  - OEDEMA [None]
  - POLYMYALGIA [None]
